FAERS Safety Report 8462407-5 (Version None)
Quarter: 2012Q2

REPORT INFORMATION
  Report Type: 
  Country: None (occurrence: None)
  Receive Date: 20120625
  Receipt Date: 20120613
  Transmission Date: 20120825
  Serious: Yes (Other)
  Sender: FDA-Public Use
  Company Number: US-ASTRAZENECA-2012SE39476

PATIENT
  Age: 66 Year
  Sex: Male
  Weight: 77.1 kg

DRUGS (10)
  1. CLONAZEPAM [Concomitant]
  2. ASPIRIN [Concomitant]
  3. TOPROL-XL [Suspect]
     Indication: MIGRAINE PROPHYLAXIS
     Route: 048
  4. NEXIUM [Suspect]
     Route: 048
  5. CRESTOR [Suspect]
     Route: 048
  6. CLARITIN [Concomitant]
  7. AMLODIPINE BENAZ [Concomitant]
  8. NEXIUM [Suspect]
     Indication: GASTROOESOPHAGEAL REFLUX DISEASE
     Route: 048
  9. KRILL OIL [Concomitant]
  10. CITRUSEL [Concomitant]

REACTIONS (12)
  - RASH [None]
  - INTENTIONAL DRUG MISUSE [None]
  - DYSPEPSIA [None]
  - DRUG INEFFECTIVE [None]
  - CEREBROVASCULAR ACCIDENT [None]
  - HYPERHIDROSIS [None]
  - OFF LABEL USE [None]
  - GASTROOESOPHAGEAL REFLUX DISEASE [None]
  - MIDDLE INSOMNIA [None]
  - FORMICATION [None]
  - PALPITATIONS [None]
  - ABDOMINAL DISCOMFORT [None]
